FAERS Safety Report 16124688 (Version 2)
Quarter: 2019Q2

REPORT INFORMATION
  Report Type: Spontaneous
  Country: JP (occurrence: JP)
  Receive Date: 20190327
  Receipt Date: 20190412
  Transmission Date: 20190711
  Serious: Yes (Hospitalization, Other)
  Sender: FDA-Public Use
  Company Number: PHJP2019JP003570

PATIENT
  Age: 58 Year
  Sex: Female
  Weight: 36.5 kg

DRUGS (7)
  1. ZOMETA [Suspect]
     Active Substance: ZOLEDRONIC ACID
     Indication: METASTASES TO SPINE
     Dosage: 3.5 MG, QMO
     Route: 041
  2. EXEMESTANE. [Concomitant]
     Active Substance: EXEMESTANE
     Indication: PRODUCT USED FOR UNKNOWN INDICATION
     Dosage: UNK
     Route: 065
  3. ZOMETA [Suspect]
     Active Substance: ZOLEDRONIC ACID
     Indication: METASTASES TO BONE
     Dosage: 4 MG, QMO
     Route: 041
  4. ANASTROZOLE. [Concomitant]
     Active Substance: ANASTROZOLE
     Indication: METASTASES TO BONE
     Dosage: UNK
     Route: 065
  5. ANASTROZOLE. [Concomitant]
     Active Substance: ANASTROZOLE
     Indication: METASTASES TO SPINE
  6. AFINITOR [Suspect]
     Active Substance: EVEROLIMUS
     Indication: BREAST CANCER RECURRENT
     Dosage: 10 MG, UNK
     Route: 048
     Dates: start: 20170901
  7. ZOMETA [Suspect]
     Active Substance: ZOLEDRONIC ACID
     Dosage: 3 MG/ML, QMO
     Route: 041
     Dates: end: 20171028

REACTIONS (24)
  - Urine phosphorus abnormal [Unknown]
  - Diabetes mellitus [Unknown]
  - Decreased appetite [Unknown]
  - Fatigue [Unknown]
  - Metabolic acidosis [Unknown]
  - Hypophosphataemia [Unknown]
  - Hypokalaemia [Unknown]
  - Urine analysis abnormal [Unknown]
  - Pyrexia [Not Recovered/Not Resolved]
  - Hypocalcaemia [Unknown]
  - Renal tubular acidosis [Unknown]
  - Aminoaciduria [Unknown]
  - Glycosuria [Unknown]
  - Malignant neoplasm progression [Unknown]
  - Fanconi syndrome acquired [Recovered/Resolved]
  - Renal tubular dysfunction [Unknown]
  - Albumin urine present [Unknown]
  - Hypouricaemia [Unknown]
  - Blood potassium decreased [Unknown]
  - Beta 2 microglobulin urine abnormal [Unknown]
  - Dehydration [Unknown]
  - Renal impairment [Unknown]
  - Breast cancer [Unknown]
  - Glucose urine [Unknown]

NARRATIVE: CASE EVENT DATE: 20171125
